FAERS Safety Report 12076051 (Version 1)
Quarter: 2016Q1

REPORT INFORMATION
  Report Type: Spontaneous
  Country: GB (occurrence: GB)
  Receive Date: 20160215
  Receipt Date: 20160215
  Transmission Date: 20160526
  Serious: Yes (Death, Congenital Anomaly, Other)
  Sender: FDA-Public Use
  Company Number: GB-ALEMBIC PHARMACUETICALS LIMITED-2016SCAL000104

PATIENT

DRUGS (1)
  1. LAMOTRIGINE. [Suspect]
     Active Substance: LAMOTRIGINE
     Indication: EPILEPSY
     Dosage: UNK
     Route: 064

REACTIONS (3)
  - Death neonatal [Fatal]
  - Congenital anomaly [Unknown]
  - Foetal exposure during pregnancy [Unknown]
